FAERS Safety Report 8284060-6 (Version None)
Quarter: 2012Q2

REPORT INFORMATION
  Report Type: 
  Country: None (occurrence: None)
  Receive Date: 20120413
  Receipt Date: 20110929
  Transmission Date: 20120825
  Serious: No
  Sender: FDA-Public Use
  Company Number: US-ASTRAZENECA-2011SE08257

PATIENT
  Age: 48 Year
  Sex: Male

DRUGS (3)
  1. CRESTOR [Suspect]
     Route: 048
  2. NEXIUM [Suspect]
     Route: 048
  3. CRESTOR [Suspect]
     Route: 048

REACTIONS (5)
  - GASTRIC ULCER [None]
  - DRUG DOSE OMISSION [None]
  - CORONARY ARTERY DISEASE [None]
  - ARTERIAL OCCLUSIVE DISEASE [None]
  - GASTRIC DISORDER [None]
